FAERS Safety Report 16337148 (Version 1)
Quarter: 2019Q2

REPORT INFORMATION
  Report Type: Spontaneous
  Country: US (occurrence: US)
  Receive Date: 20190521
  Receipt Date: 20190521
  Transmission Date: 20190711
  Serious: No
  Sender: FDA-Public Use
  Company Number: US-PFIZER INC-2019214490

PATIENT
  Age: 64 Year
  Sex: Female

DRUGS (1)
  1. IBRANCE [Suspect]
     Active Substance: PALBOCICLIB
     Indication: BREAST CANCER FEMALE
     Dosage: 125 MG, CYCLIC (DAILY FOR 21 DAYS AND 7 DAYS OFF)
     Route: 048
     Dates: start: 201803

REACTIONS (5)
  - Abdominal discomfort [Unknown]
  - Vomiting [Unknown]
  - Diarrhoea [Unknown]
  - Nausea [Unknown]
  - Abdominal pain upper [Unknown]
